FAERS Safety Report 16910385 (Version 12)
Quarter: 2019Q4

REPORT INFORMATION
  Report Type: Spontaneous
  Country: CN (occurrence: CN)
  Receive Date: 20191011
  Receipt Date: 20191112
  Transmission Date: 20200122
  Serious: Yes (Death, Life-Threatening, Hospitalization)
  Sender: FDA-Public Use
  Company Number: CN-B.I. PHARMACEUTICALS,INC./RIDGEFIELD-2019-BI-102176

PATIENT
  Age: 60 Year
  Sex: Female

DRUGS (3)
  1. GILOTRIF [Suspect]
     Active Substance: AFATINIB
     Route: 048
     Dates: start: 20190822, end: 20190905
  2. GILOTRIF [Suspect]
     Active Substance: AFATINIB
     Indication: NON-SMALL CELL LUNG CANCER
     Route: 048
     Dates: start: 20190806, end: 20190818
  3. GILOTRIF [Suspect]
     Active Substance: AFATINIB
     Indication: EGFR GENE MUTATION
     Route: 048
     Dates: start: 20190819, end: 20190821

REACTIONS (14)
  - Electrolyte imbalance [Recovering/Resolving]
  - Rash [Recovering/Resolving]
  - Metastases to lung [Fatal]
  - Lung neoplasm malignant [Fatal]
  - Somnolence [Unknown]
  - Mucosal inflammation [Recovering/Resolving]
  - Bronchial carcinoma [Fatal]
  - Rash [Recovering/Resolving]
  - Mouth ulceration [Recovering/Resolving]
  - Diarrhoea [Recovering/Resolving]
  - Dermatitis exfoliative [Recovering/Resolving]
  - Blood glucose increased [Unknown]
  - Skin haemorrhage [Unknown]
  - Gastrointestinal haemorrhage [Fatal]

NARRATIVE: CASE EVENT DATE: 201908
